FAERS Safety Report 9992353 (Version 2)
Quarter: 2014Q2

REPORT INFORMATION
  Report Type: Spontaneous
  Country: US (occurrence: US)
  Receive Date: 20140310
  Receipt Date: 20140507
  Transmission Date: 20141212
  Serious: Yes (Other)
  Sender: FDA-Public Use
  Company Number: US-GLAXOSMITHKLINE-A1063106A

PATIENT
  Age: 51 Year
  Sex: Female
  Weight: 86 kg

DRUGS (9)
  1. LAMICTAL [Suspect]
     Indication: EPILEPSY
     Dosage: 300MG TWICE PER DAY
     Route: 048
     Dates: start: 199807, end: 20120804
  2. TRILEPTAL [Concomitant]
     Dosage: 600MG THREE TIMES PER DAY
     Dates: start: 20111207
  3. VITAMIN D [Concomitant]
  4. TEMOVATE CREAM [Concomitant]
  5. FLEXERIL [Concomitant]
  6. PROZAC [Concomitant]
  7. NASONEX [Concomitant]
  8. SIMVASTATIN [Concomitant]
  9. ZANTAC [Concomitant]

REACTIONS (1)
  - Interstitial lung disease [Not Recovered/Not Resolved]
